FAERS Safety Report 8429238-3 (Version None)
Quarter: 2012Q2

REPORT INFORMATION
  Report Type: 
  Country: None (occurrence: None)
  Receive Date: 20120612
  Receipt Date: 20120601
  Transmission Date: 20120825
  Serious: Yes (Hospitalization)
  Sender: FDA-Public Use
  Company Number: PHHY2011US14315

PATIENT
  Sex: Female

DRUGS (2)
  1. GLEEVEC [Suspect]
     Dosage: 400 MG + 100 MG, QD
  2. GLEEVEC [Suspect]
     Indication: CHRONIC MYELOID LEUKAEMIA
     Dosage: 400MG + 100MG, DAILY
     Route: 048
     Dates: start: 20070814

REACTIONS (9)
  - CONFUSIONAL STATE [None]
  - VOMITING [None]
  - ANAEMIA [None]
  - FALL [None]
  - ABDOMINAL DISTENSION [None]
  - DISORIENTATION [None]
  - MALAISE [None]
  - RENAL DISORDER [None]
  - ASTHENIA [None]
